FAERS Safety Report 5311749-0 (Version None)
Quarter: 2007Q1

REPORT INFORMATION
  Report Type: 
  Country: None (occurrence: None)
  Receive Date: 20070201
  Receipt Date: 20061009
  Transmission Date: 20070707
  Serious: No
  Sender: FDA-Public Use
  Company Number: 257596

PATIENT
  Age: 61 Year
  Sex: Male
  Weight: 104.3 kg

DRUGS (4)
  1. LEVEMIR [Suspect]
     Indication: INSULIN-REQUIRING TYPE II DIABETES MELLITUS
     Dosage: 79 IU, QD, SUBCUTANEOUS
     Route: 058
     Dates: start: 20060401
  2. METFORMIN HCL [Concomitant]
  3. ACTOS [Concomitant]
  4. VASOTEC [Concomitant]

REACTIONS (1)
  - BLOOD GLUCOSE DECREASED [None]
